FAERS Safety Report 17290400 (Version 2)
Quarter: 2020Q1

REPORT INFORMATION
  Report Type: Report from Study
  Country: None (occurrence: US)
  Receive Date: 20200121
  Receipt Date: 20200331
  Transmission Date: 20200409
  Serious: Yes (Hospitalization, Other)
  Sender: FDA-Public Use
  Company Number: US-ABBVIE-19K-163-3193493-00

PATIENT
  Age: 69 Year
  Sex: Female
  Weight: 86.26 kg

DRUGS (2)
  1. HUMIRA [Suspect]
     Active Substance: ADALIMUMAB
     Route: 058
     Dates: start: 201911
  2. HUMIRA [Suspect]
     Active Substance: ADALIMUMAB
     Indication: RHEUMATOID ARTHRITIS
     Route: 058
     Dates: start: 2010, end: 2019

REACTIONS (10)
  - Pain [Recovered/Resolved]
  - Therapeutic product effect decreased [Unknown]
  - Pain [Unknown]
  - Limb malformation [Unknown]
  - Spinal fusion surgery [Recovering/Resolving]
  - Pain in extremity [Unknown]
  - Abdominal pain upper [Recovered/Resolved]
  - Impaired healing [Unknown]
  - Cyst [Unknown]
  - Musculoskeletal stiffness [Unknown]

NARRATIVE: CASE EVENT DATE: 2019
